FAERS Safety Report 25372240 (Version 2)
Quarter: 2025Q2

REPORT INFORMATION
  Report Type: Spontaneous
  Country: JP (occurrence: JP)
  Receive Date: 20250529
  Receipt Date: 20250605
  Transmission Date: 20250716
  Serious: Yes (Other)
  Sender: NOVO NORDISK
  Company Number: JP-NOVOPROD-1439377

PATIENT
  Age: 5 Decade
  Sex: Male
  Weight: 71 kg

DRUGS (7)
  1. CONCIZUMAB [Suspect]
     Active Substance: CONCIZUMAB
     Dosage: 14 MG, QD
     Route: 058
     Dates: start: 20250411
  2. CONCIZUMAB [Suspect]
     Active Substance: CONCIZUMAB
     Indication: Factor IX deficiency
     Dosage: 71 MG, QD
     Route: 058
     Dates: start: 20250410
  3. ALPROLIX [Concomitant]
     Active Substance: EFTRENONACOG ALFA
     Dates: start: 20250416
  4. ALPROLIX [Concomitant]
     Active Substance: EFTRENONACOG ALFA
     Dates: start: 20250423
  5. ALPROLIX [Concomitant]
     Active Substance: EFTRENONACOG ALFA
     Dates: start: 20250506
  6. ALPROLIX [Concomitant]
     Active Substance: EFTRENONACOG ALFA
     Indication: Haemorrhagic diathesis
  7. ALPROLIX [Concomitant]
     Active Substance: EFTRENONACOG ALFA
     Dates: start: 202504

REACTIONS (4)
  - Haematochezia [Recovered/Resolved]
  - Haematochezia [Recovered/Resolved]
  - Haematochezia [Recovered/Resolved]
  - Ligament sprain [Recovered/Resolved]

NARRATIVE: CASE EVENT DATE: 20250416
